FAERS Safety Report 5451543-3 (Version None)
Quarter: 2007Q3

REPORT INFORMATION
  Report Type: 
  Country: None (occurrence: None)
  Receive Date: 20070913
  Receipt Date: 20070906
  Transmission Date: 20080115
  Serious: Yes (Life-Threatening, Disabling)
  Sender: FDA-Public Use
  Company Number: GB-SANOFI-SYNTHELABO-A01200710060

PATIENT
  Age: 53 Year
  Sex: Female
  Weight: 90 kg

DRUGS (8)
  1. GRANISETRON  HCL [Concomitant]
     Indication: NAUSEA
     Dosage: 1 MG
     Route: 048
     Dates: start: 20070726
  2. GRANISETRON  HCL [Concomitant]
     Indication: VOMITING
     Dosage: 1 MG
     Route: 048
     Dates: start: 20070726
  3. DOMPERIDONE [Concomitant]
     Indication: NAUSEA
     Dosage: 20 MG
     Route: 048
     Dates: start: 20070726
  4. DOMPERIDONE [Concomitant]
     Indication: VOMITING
     Dosage: 20 MG
     Route: 048
     Dates: start: 20070726
  5. DEXAMETHASONE 0.5MG TAB [Concomitant]
     Indication: NAUSEA
     Dosage: 10 MG
     Route: 048
     Dates: start: 20070726, end: 20070728
  6. DEXAMETHASONE 0.5MG TAB [Concomitant]
     Indication: VOMITING
     Dosage: 10 MG
     Route: 048
     Dates: start: 20070726, end: 20070728
  7. CAPECITABINE [Suspect]
     Route: 048
     Dates: start: 20070726, end: 20070809
  8. OXALIPLATIN [Suspect]
     Indication: COLON CANCER
     Route: 042
     Dates: start: 20070726, end: 20070726

REACTIONS (1)
  - THROMBOTIC STROKE [None]
